FAERS Safety Report 6137809-2 (Version None)
Quarter: 2009Q1

REPORT INFORMATION
  Report Type: 
  Country: None (occurrence: None)
  Receive Date: 20090331
  Receipt Date: 20090302
  Transmission Date: 20090719
  Serious: No
  Sender: FDA-Public Use
  Company Number: US-BAYER-200914425NA

PATIENT
  Age: 42 Year
  Sex: Female

DRUGS (3)
  1. YAZ [Suspect]
     Indication: CONTRACEPTION
     Route: 048
     Dates: start: 20070101, end: 20080124
  2. YAZ [Suspect]
     Route: 048
     Dates: start: 20090218
  3. CIPROFLOXACIN HCL [Concomitant]
     Indication: POSTOPERATIVE CARE

REACTIONS (1)
  - VAGINAL HAEMORRHAGE [None]
